FAERS Safety Report 7706184-1 (Version None)
Quarter: 2011Q3

REPORT INFORMATION
  Report Type: 
  Country: None (occurrence: None)
  Receive Date: 20110824
  Receipt Date: 20110811
  Transmission Date: 20111222
  Serious: Yes (Hospitalization)
  Sender: FDA-Public Use
  Company Number: US-ELI_LILLY_AND_COMPANY-US201108004908

PATIENT
  Sex: Male

DRUGS (2)
  1. PLAVIX [Concomitant]
  2. EFFIENT [Suspect]
     Dosage: 10 MG, QD

REACTIONS (1)
  - HOSPITALISATION [None]
